FAERS Safety Report 13189222 (Version 2)
Quarter: 2017Q1

REPORT INFORMATION
  Report Type: Report from Study
  Country: US (occurrence: US)
  Receive Date: 20170206
  Receipt Date: 20170208
  Transmission Date: 20170428
  Serious: Yes (Other)
  Sender: FDA-Public Use
  Company Number: US-PFIZER INC-2017026921

PATIENT
  Age: 58 Year
  Sex: Male

DRUGS (2)
  1. SUTENT [Suspect]
     Active Substance: SUNITINIB MALATE
     Indication: RENAL CELL CARCINOMA
  2. SUTENT [Suspect]
     Active Substance: SUNITINIB MALATE
     Indication: PRIMITIVE NEUROECTODERMAL TUMOUR
     Dosage: 37.5 MG, DAILY
     Route: 048
     Dates: start: 20140401

REACTIONS (16)
  - Decreased appetite [Unknown]
  - Weight decreased [Unknown]
  - Abdominal pain [Unknown]
  - Diarrhoea [Unknown]
  - Haemorrhagic fever with renal syndrome [Unknown]
  - Hypertension [Unknown]
  - Tooth disorder [Unknown]
  - Asthenia [Unknown]
  - Pruritus [Unknown]
  - Myalgia [Unknown]
  - Constipation [Unknown]
  - Gingival disorder [Unknown]
  - Depressed mood [Unknown]
  - Drug dose omission [Unknown]
  - Insomnia [Unknown]
  - Dysgeusia [Unknown]
